FAERS Safety Report 5607178-2 (Version None)
Quarter: 2008Q1

REPORT INFORMATION
  Report Type: 
  Country: None (occurrence: None)
  Receive Date: 20080111
  Receipt Date: 20070914
  Transmission Date: 20080703
  Serious: Yes (Other)
  Sender: FDA-Public Use
  Company Number: HQWYE188016JUL04

PATIENT
  Sex: Female

DRUGS (7)
  1. PREMPRO [Suspect]
     Indication: HORMONE REPLACEMENT THERAPY
  2. CYCRIN [Suspect]
  3. ESTRACE [Suspect]
  4. ESTRADERM [Suspect]
  5. PREMARIN [Suspect]
     Indication: OESTROGEN REPLACEMENT THERAPY
  6. PROVERA [Suspect]
  7. VIVELLE [Suspect]

REACTIONS (1)
  - BREAST CANCER [None]
